FAERS Safety Report 8226112-2 (Version None)
Quarter: 2012Q1

REPORT INFORMATION
  Report Type: 
  Country: None (occurrence: None)
  Receive Date: 20120307
  Receipt Date: 20090629
  Transmission Date: 20120608
  Serious: No
  Sender: FDA-Public Use
  Company Number: PHEH2009US06013

PATIENT
  Age: 38 Year
  Sex: Male
  Weight: 120.2 kg

DRUGS (19)
  1. CLONAZEPAM [Concomitant]
  2. FLOMAX [Concomitant]
  3. METRO (METRONIDAZOLE) [Concomitant]
  4. CLARITIN [Concomitant]
  5. CLONIDINE [Concomitant]
  6. MIRALAX [Concomitant]
  7. FIBERCON (POLYCARBOPHIL CALCIUM) (POLYCARBOPHIL CALCIUM) [Concomitant]
  8. COUMADIN [Concomitant]
  9. LORTAB [Concomitant]
  10. ENABLEX [Concomitant]
  11. LAXATIVES (NO INGREDIENTS/SUBSTANCES) [Concomitant]
  12. PROSCAR [Concomitant]
  13. POTASSIUM CITRATE [Concomitant]
  14. ZANAFLEX (TIZANIDINE HYDROCHLORDIE) [Concomitant]
  15. ICAPS (MINERALS NOS, VITAMIN NOS) [Concomitant]
  16. BACLOFEN [Concomitant]
  17. MVI (VIMTAINS NOS) [Concomitant]
  18. VALIUM [Concomitant]
  19. AFINITOR [Suspect]
     Indication: RENAL CANCER
     Dosage: 10 MG, QD, ORAL
     Route: 048
     Dates: start: 20090424

REACTIONS (3)
  - RASH PAPULAR [None]
  - RASH [None]
  - RASH PRURITIC [None]
